FAERS Safety Report 23146503 (Version 1)
Quarter: 2023Q4

REPORT INFORMATION
  Report Type: Spontaneous
  Country: US (occurrence: US)
  Receive Date: 20231105
  Receipt Date: 20231105
  Transmission Date: 20240109
  Serious: No
  Sender: FDA-Public Use
  Company Number: US-EPICPHARMA-US-2023EPCSPO01633

PATIENT
  Sex: Female

DRUGS (6)
  1. SULFADIAZINE [Suspect]
     Active Substance: SULFADIAZINE
     Indication: Psoriasis
     Route: 065
  2. KETOCONAZOLE [Suspect]
     Active Substance: KETOCONAZOLE
     Indication: Psoriasis
     Route: 065
  3. COSENTYX [Suspect]
     Active Substance: SECUKINUMAB
     Indication: Psoriasis
     Route: 065
  4. PREDNISONE [Suspect]
     Active Substance: PREDNISONE
     Indication: Psoriasis
     Route: 065
  5. MUPIROCIN [Suspect]
     Active Substance: MUPIROCIN
     Indication: Psoriasis
     Route: 065
  6. HALOBETASOL [Suspect]
     Active Substance: HALOBETASOL
     Indication: Psoriasis
     Route: 065

REACTIONS (11)
  - Palmoplantar pustulosis [Unknown]
  - Drug eruption [Unknown]
  - Gait disturbance [Unknown]
  - Skin exfoliation [Unknown]
  - Skin burning sensation [Unknown]
  - Skin weeping [Unknown]
  - Nail psoriasis [Unknown]
  - Rash [Unknown]
  - Purpura [Unknown]
  - Therapeutic product effect incomplete [Unknown]
  - Product use in unapproved indication [Unknown]
